FAERS Safety Report 6259409-6 (Version None)
Quarter: 2009Q2

REPORT INFORMATION
  Report Type: 
  Country: None (occurrence: None)
  Receive Date: 20090629
  Receipt Date: 20090615
  Transmission Date: 20091009
  Serious: Yes (Hospitalization)
  Sender: FDA-Public Use
  Company Number: THYM-1000952

PATIENT
  Age: 63 Year
  Sex: Female
  Weight: 67.8 kg

DRUGS (14)
  1. THYMOGLOBULIN [Suspect]
     Indication: RENAL TRANSPLANT
     Dosage: 100 MG, INTRAVENOUS
     Route: 042
     Dates: start: 20090303, end: 20090312
  2. BORTEZOMIB (BORTEZOMIB) [Concomitant]
  3. PREDNISONE TAB [Concomitant]
  4. PROGRAF [Concomitant]
  5. CELLCEPT [Concomitant]
  6. CALCIUM CARBONATE VITAMIN D [Concomitant]
  7. COREG [Concomitant]
  8. BACTRIM [Concomitant]
  9. VALCYTE [Concomitant]
  10. LEVEMIR [Concomitant]
  11. IMODIUM [Concomitant]
  12. ASPIRIN [Concomitant]
  13. LEXAPRO [Concomitant]
  14. LIPITOR [Concomitant]

REACTIONS (14)
  - ABDOMINAL PAIN [None]
  - ANAEMIA [None]
  - ASTHENIA [None]
  - BACK PAIN [None]
  - DIARRHOEA [None]
  - FATIGUE [None]
  - FLANK PAIN [None]
  - HYPERGLYCAEMIA [None]
  - LEUKOCYTOSIS [None]
  - METABOLIC ACIDOSIS [None]
  - NAUSEA [None]
  - PRODUCTIVE COUGH [None]
  - PYREXIA [None]
  - RENAL FAILURE ACUTE [None]
